FAERS Safety Report 20647655 (Version 1)
Quarter: 2022Q1

REPORT INFORMATION
  Report Type: Spontaneous
  Country: IN (occurrence: IN)
  Receive Date: 20220329
  Receipt Date: 20220329
  Transmission Date: 20220423
  Serious: Yes (Life-Threatening, Hospitalization, Other)
  Sender: FDA-Public Use
  Company Number: IN-MLMSERVICE-20220317-3436264-1

PATIENT
  Age: 70 Year
  Sex: Female

DRUGS (5)
  1. METHYLPREDNISOLONE [Suspect]
     Active Substance: METHYLPREDNISOLONE
     Indication: COVID-19
     Route: 042
  2. METHOTREXATE [Suspect]
     Active Substance: METHOTREXATE
     Indication: Interstitial lung disease
  3. AMPHOTERICIN B [Suspect]
     Active Substance: AMPHOTERICIN B
     Indication: Mucormycosis
     Dosage: LIPID FORMULATION
  4. ENOXAPARIN SODIUM [Concomitant]
     Active Substance: ENOXAPARIN SODIUM
     Indication: COVID-19
     Route: 058
  5. ASPIRIN [Concomitant]
     Active Substance: ASPIRIN
     Indication: Hemiparesis

REACTIONS (3)
  - Staphylococcal infection [Recovered/Resolved]
  - Pancytopenia [Recovered/Resolved]
  - Rhinocerebral mucormycosis [Recovered/Resolved]
